FAERS Safety Report 4510733-4 (Version None)
Quarter: 2004Q4

REPORT INFORMATION
  Report Type: 
  Country: None (occurrence: None)
  Receive Date: 20041025
  Receipt Date: 20031125
  Transmission Date: 20050328
  Serious: Yes (Other)
  Sender: FDA-Public Use
  Company Number: NSADSS2002036052

PATIENT
  Age: 70 Year
  Sex: Male

DRUGS (7)
  1. REMICADE [Suspect]
     Indication: RHEUMATOID ARTHRITIS
     Dosage: SEE IMAGE
     Route: 041
     Dates: end: 20020101
  2. REMICADE [Suspect]
     Indication: RHEUMATOID ARTHRITIS
     Dosage: SEE IMAGE
     Route: 041
     Dates: start: 20020101
  3. METHOTREXATE [Suspect]
     Indication: RHEUMATOID ARTHRITIS
     Dosage: 20 MG, 1 IN 1 WEEK, ORAL
     Route: 048
  4. FLOMAX (TABLETS) TAMSULOSIN HYDROCHLORIDE [Concomitant]
  5. CLARINEX [Concomitant]
  6. NASACORT [Concomitant]
  7. DICLOFENAC SODIUM [Concomitant]

REACTIONS (1)
  - NON-HODGKIN'S LYMPHOMA [None]
